FAERS Safety Report 8272634-8 (Version None)
Quarter: 2012Q2

REPORT INFORMATION
  Report Type: 
  Country: None (occurrence: None)
  Receive Date: 20120410
  Receipt Date: 20120328
  Transmission Date: 20120825
  Serious: Yes (Other)
  Sender: FDA-Public Use
  Company Number: US-ELI_LILLY_AND_COMPANY-US201203003552

PATIENT
  Sex: Female

DRUGS (1)
  1. HUMATROPE [Suspect]
     Indication: HYPOPITUITARISM
     Dosage: 0.04 MG, UNKNOWN

REACTIONS (3)
  - THYROIDECTOMY [None]
  - DRUG DOSE OMISSION [None]
  - ANGER [None]
